FAERS Safety Report 4741850-1 (Version None)
Quarter: 2005Q3

REPORT INFORMATION
  Report Type: 
  Country: None (occurrence: None)
  Receive Date: 20050801
  Receipt Date: 20050617
  Transmission Date: 20060218
  Serious: No
  Sender: FDA-Public Use
  Company Number: 2005PV000081

PATIENT
  Age: 69 Year
  Sex: Female

DRUGS (5)
  1. BYETTA [Suspect]
     Indication: DIABETES MELLITUS NON-INSULIN-DEPENDENT
     Dosage: 5 UG;BID;SC
     Route: 058
     Dates: start: 20050617
  2. GLYBURIDE [Concomitant]
  3. OXYGEN [Concomitant]
  4. OXYGEN [Concomitant]
  5. CHEMO THERAPY [Concomitant]

REACTIONS (4)
  - BLOOD GLUCOSE DECREASED [None]
  - HEADACHE [None]
  - HYPERHIDROSIS [None]
  - NERVOUSNESS [None]
